FAERS Safety Report 20125672 (Version 1)
Quarter: 2021Q4

REPORT INFORMATION
  Report Type: Spontaneous
  Country: US (occurrence: US)
  Receive Date: 20211129
  Receipt Date: 20211129
  Transmission Date: 20220303
  Serious: No
  Sender: FDA-Public Use
  Company Number: US-ANTARES PHARMA, INC.-2021-SPO-MX-0856

PATIENT

DRUGS (3)
  1. OTREXUP [Suspect]
     Active Substance: METHOTREXATE
     Indication: Rheumatoid arthritis
     Dosage: 25 MG/0.4ML, QWK
     Route: 058
  2. OTREXUP [Suspect]
     Active Substance: METHOTREXATE
     Indication: Sjogren^s syndrome
  3. OTREXUP [Suspect]
     Active Substance: METHOTREXATE
     Indication: Product use in unapproved indication

REACTIONS (1)
  - Product use in unapproved indication [Unknown]
